FAERS Safety Report 25286189 (Version 2)
Quarter: 2025Q2

REPORT INFORMATION
  Report Type: Spontaneous
  Country: US (occurrence: US)
  Receive Date: 20250509
  Receipt Date: 20250516
  Transmission Date: 20250716
  Serious: Yes (Life-Threatening, Hospitalization, Other)
  Sender: AUROBINDO
  Company Number: US-MLMSERVICE-20250418-PI482555-00080-2

PATIENT
  Age: 75 Year
  Sex: Male

DRUGS (4)
  1. CARBIDOPA\LEVODOPA [Interacting]
     Active Substance: CARBIDOPA\LEVODOPA
     Indication: Parkinson^s disease
     Dosage: 1 DOSAGE FORM, 3 TIMES A DAY (25 MG/100 MG)
  2. PANTOPRAZOLE [Suspect]
     Active Substance: PANTOPRAZOLE
     Indication: Prophylaxis
     Dosage: 40 MILLIGRAM, ONCE A DAY
  3. HYDROMORPHONE [Concomitant]
     Active Substance: HYDROMORPHONE
     Indication: Pain
     Route: 065
  4. ACETAMINOPHEN [Concomitant]
     Active Substance: ACETAMINOPHEN
     Indication: Pyrexia
     Route: 065

REACTIONS (9)
  - Acute kidney injury [Unknown]
  - Parkinsonism hyperpyrexia syndrome [Recovering/Resolving]
  - Rhabdomyolysis [Recovering/Resolving]
  - Acidosis [Unknown]
  - Hypervolaemia [Unknown]
  - Withdrawal syndrome [Unknown]
  - Drug interaction [Recovering/Resolving]
  - Product dose omission issue [Unknown]
  - Diarrhoea [Unknown]
